FAERS Safety Report 19369675 (Version 8)
Quarter: 2022Q2

REPORT INFORMATION
  Report Type: Report from Study
  Country: CA (occurrence: CA)
  Receive Date: 20210603
  Receipt Date: 20220630
  Transmission Date: 20220721
  Serious: Yes (Other)
  Sender: FDA-Public Use
  Company Number: CA-TAKEDA-2021TUS034635

PATIENT
  Age: 59 Year
  Sex: Male

DRUGS (4)
  1. VEDOLIZUMAB [Suspect]
     Active Substance: VEDOLIZUMAB
     Indication: Colitis ulcerative
     Dosage: 300 MILLIGRAM
     Route: 042
     Dates: start: 20210416
  2. VEDOLIZUMAB [Suspect]
     Active Substance: VEDOLIZUMAB
     Dosage: 300 MILLIGRAM
     Route: 042
  3. VEDOLIZUMAB [Suspect]
     Active Substance: VEDOLIZUMAB
     Dosage: 300 MILLIGRAM
     Route: 042
  4. VEDOLIZUMAB [Suspect]
     Active Substance: VEDOLIZUMAB
     Dosage: 300 MILLIGRAM
     Route: 042

REACTIONS (11)
  - Haematochezia [Unknown]
  - Respiratory tract infection [Unknown]
  - Intestinal polyp [Unknown]
  - Mucous stools [Unknown]
  - Diarrhoea [Unknown]
  - Defaecation urgency [Unknown]
  - Insomnia [Unknown]
  - Somnolence [Unknown]
  - Flatulence [Unknown]
  - Fatigue [Unknown]
  - Therapeutic reaction time decreased [Unknown]
